FAERS Safety Report 12210172 (Version 12)
Quarter: 2021Q3

REPORT INFORMATION
  Report Type: Spontaneous
  Country: US (occurrence: US)
  Receive Date: 20160325
  Receipt Date: 20210806
  Transmission Date: 20211014
  Serious: Yes (Disabling)
  Sender: FDA-Public Use
  Company Number: US-PFIZER INC-2016158695

PATIENT
  Age: 66 Year
  Sex: Female
  Weight: 114 kg

DRUGS (28)
  1. LYRICA [Suspect]
     Active Substance: PREGABALIN
     Indication: ARTHRALGIA
     Dosage: 50 MG, 3X/DAY
     Route: 048
     Dates: start: 20160209, end: 2016
  2. HUMULIN N [Concomitant]
     Active Substance: INSULIN HUMAN
     Indication: DIABETES MELLITUS
     Dosage: 24 IU, 2X/DAY (24 UNITS INJECTION TWICE A DAY BEFORE MEALS AT BREAKFAST AND SUPPER/BEFORE MEALS)
     Dates: start: 2010
  3. PERCOCET [Concomitant]
     Active Substance: ACETAMINOPHEN\OXYCODONE HYDROCHLORIDE
     Indication: PAIN
     Dosage: 10MG/325MG HALF TABLET AS NEEDED
     Dates: start: 2013
  4. BUMEX [Concomitant]
     Active Substance: BUMETANIDE
     Dosage: 1 MG, UNK
     Route: 048
  5. COLCHICINE. [Concomitant]
     Active Substance: COLCHICINE
     Indication: GOUT
     Dosage: 0.6 MG, AS NEEDED, (ONE TABLET DAILY AS NEEDED)
     Route: 048
  6. DIOVAN HCT [Concomitant]
     Active Substance: HYDROCHLOROTHIAZIDE\VALSARTAN
     Dosage: UNK, [VALSARTAN 160 MG/ HYDROCHLOROTHIAZIDE 12.5 MG]
     Route: 048
  7. PLAVIX [Concomitant]
     Active Substance: CLOPIDOGREL BISULFATE
     Indication: THROMBOSIS
     Dosage: 75 MG, 1X/DAY
     Dates: start: 2014
  8. PLAVIX [Concomitant]
     Active Substance: CLOPIDOGREL BISULFATE
     Dosage: 75 MG, 1X/DAY
  9. GLUCOPHAGE [Concomitant]
     Active Substance: METFORMIN HYDROCHLORIDE
     Dosage: 500 MG, UNK
     Route: 048
  10. LYRICA [Suspect]
     Active Substance: PREGABALIN
     Dosage: 50 MG, 3X/DAY
     Route: 048
     Dates: start: 20170516
  11. DIOVAN HCT [Concomitant]
     Active Substance: HYDROCHLOROTHIAZIDE\VALSARTAN
     Dosage: 1 DF, 1X/DAY (160/12.5; 1X DAILY )
  12. SYNTHROID [Concomitant]
     Active Substance: LEVOTHYROXINE SODIUM
     Dosage: 200 UG, WEEKLY (2 TABLETS OF 100 MCG ON SUNDAY)
  13. ASPIRIN (E.C.) [Concomitant]
     Active Substance: ASPIRIN
     Indication: THROMBOSIS
     Dosage: 325 MG, 2X/DAY
     Route: 048
  14. ASPIRIN (E.C.) [Concomitant]
     Active Substance: ASPIRIN
     Dosage: 325 MG, 1X/DAY
  15. LYRICA [Suspect]
     Active Substance: PREGABALIN
     Dosage: 100 MG, 2X/DAY, (TAKE 100 MG BY MOUTH 2 TIMES A DAY TAKE IN AM)
     Route: 048
  16. SYNTHROID [Concomitant]
     Active Substance: LEVOTHYROXINE SODIUM
     Dosage: 100 UG, 1X/DAY (1 TABLET DAILY EXCEPT ON SUNDAYS)
     Route: 048
  17. CRESTOR [Concomitant]
     Active Substance: ROSUVASTATIN CALCIUM
     Dosage: 10 MG, 1X/DAY
  18. LYRICA [Suspect]
     Active Substance: PREGABALIN
     Indication: NEURALGIA
     Dosage: 50 MG, 3X/DAY
     Route: 048
     Dates: start: 20161010, end: 2016
  19. SYNTHROID [Concomitant]
     Active Substance: LEVOTHYROXINE SODIUM
     Indication: THYROID DISORDER
     Dosage: 100 MEQ, 1X/DAY
  20. NORCO [Concomitant]
     Active Substance: ACETAMINOPHEN\HYDROCODONE BITARTRATE
     Indication: PAIN
     Dosage: 1 DF, AS NEEDED, [ACETAMINOPHEN 325 MG/ HYDROCODONE 10 MG] (ORAL TABLET TAKE 1 TABLET EVERY 4 HOURS)
     Route: 048
  21. ALLOPURINOL. [Concomitant]
     Active Substance: ALLOPURINOL
     Indication: GOUT
     Dosage: 300 MG, DAILY (TAKEN FOR 5 YEARS)
     Dates: start: 2011
  22. PERCOCET [Concomitant]
     Active Substance: ACETAMINOPHEN\OXYCODONE HYDROCHLORIDE
     Dosage: UNK (4 DEGREE?6 DEGREE 1/2 TAB)
  23. GUAIFENESIN AC [Concomitant]
     Active Substance: CODEINE PHOSPHATE\GUAIFENESIN
     Dosage: [CODEINE 10 MG/ GUAIFENESIN 100 MG/5 ML]
     Route: 048
  24. LYRICA [Suspect]
     Active Substance: PREGABALIN
     Indication: BACK PAIN
     Dosage: 50 MG, 3X/DAY
     Dates: start: 201509
  25. LYRICA [Suspect]
     Active Substance: PREGABALIN
     Dosage: 50 MG, 3X/DAY
     Route: 048
     Dates: start: 20161026, end: 2016
  26. DIOVAN HCT [Concomitant]
     Active Substance: HYDROCHLOROTHIAZIDE\VALSARTAN
     Indication: HYPERTENSION
     Dosage: 1 DF, 1X/DAY (60?12.5MG ONE DAILY)
  27. ALLOPURINOL. [Concomitant]
     Active Substance: ALLOPURINOL
     Dosage: 300 MG, 1X/DAY
  28. ASA ENTERIC COATED [Concomitant]
     Dosage: 325 MG, 1X/DAY

REACTIONS (8)
  - Weight fluctuation [Unknown]
  - Neuralgia [Unknown]
  - Fluid retention [Unknown]
  - Arthralgia [Unknown]
  - Therapeutic product effect incomplete [Unknown]
  - Dyspnoea [Unknown]
  - Weight increased [Not Recovered/Not Resolved]
  - Hypoaesthesia oral [Recovered/Resolved]
